FAERS Safety Report 7247580 (Version 4)
Quarter: 2013Q1

REPORT INFORMATION
  Report Type: Spontaneous
  Country: US (occurrence: US)
  Receive Date: 20100115
  Receipt Date: 20130328
  Transmission Date: 20140127
  Serious: Yes (Death, Other)
  Sender: FDA-Public Use
  Company Number: US-PFIZER INC-2010000995

PATIENT
  Age: 51 Year
  Sex: Female

DRUGS (10)
  1. ALPRAZOLAM [Suspect]
     Dosage: UNK
     Route: 048
  2. GLIBENCLAMIDE [Suspect]
     Dosage: UNK
     Route: 048
  3. LISINOPRIL [Suspect]
     Dosage: UNK
     Route: 048
  4. FLUOXETINE HCL [Suspect]
     Dosage: UNK
     Route: 048
  5. ZOLPIDEM TARTRATE [Suspect]
     Dosage: UNK
     Route: 048
  6. BUPROPION [Suspect]
     Dosage: UNK
     Route: 048
  7. ENALAPRIL [Suspect]
     Dosage: UNK
     Route: 048
  8. CYCLOBENZAPRINE [Suspect]
     Dosage: UNK
     Route: 048
  9. DICLOFENAC [Suspect]
     Dosage: UNK
     Route: 048
  10. LOVASTATIN [Suspect]
     Dosage: UNK
     Route: 048

REACTIONS (1)
  - Completed suicide [Fatal]
